APPROVED DRUG PRODUCT: TADALAFIL
Active Ingredient: TADALAFIL
Strength: 20MG
Dosage Form/Route: TABLET;ORAL
Application: A212515 | Product #001
Applicant: ZYDUS PHARMACEUTICALS USA INC
Approved: Jun 6, 2023 | RLD: No | RS: No | Type: DISCN